FAERS Safety Report 7715037-4 (Version None)
Quarter: 2011Q3

REPORT INFORMATION
  Report Type: 
  Country: None (occurrence: None)
  Receive Date: 20110829
  Receipt Date: 20110707
  Transmission Date: 20111222
  Serious: No
  Sender: FDA-Public Use
  Company Number: US-ASTRAZENECA-2011SE40513

PATIENT
  Age: 87 Year
  Sex: Female

DRUGS (1)
  1. VIMOVO [Suspect]
     Indication: ARTHROPATHY
     Route: 048

REACTIONS (5)
  - URINE FLOW DECREASED [None]
  - RENAL IMPAIRMENT [None]
  - SLEEP DISORDER DUE TO GENERAL MEDICAL CONDITION, INSOMNIA TYPE [None]
  - GASTRIC DISORDER [None]
  - ARTHRALGIA [None]
